FAERS Safety Report 6001685-9 (Version None)
Quarter: 2008Q4

REPORT INFORMATION
  Report Type: 
  Country: None (occurrence: None)
  Receive Date: 20081215
  Receipt Date: 20081209
  Transmission Date: 20090506
  Serious: No
  Sender: FDA-Public Use
  Company Number: US-B.I. PHARMACEUTICALS,INC./RIDGEFIELD-2008-BP-17290BP

PATIENT
  Sex: Female

DRUGS (10)
  1. SPIRIVA [Suspect]
     Indication: CHRONIC OBSTRUCTIVE PULMONARY DISEASE
     Dosage: 18MCG
     Route: 055
     Dates: start: 20070901
  2. TRAMADOL HCL [Concomitant]
     Dosage: 150MG
     Route: 048
     Dates: start: 20010101
  3. PRAVASTATIN [Concomitant]
     Indication: BLOOD CHOLESTEROL INCREASED
     Dosage: 20MG
     Route: 048
     Dates: start: 20010101
  4. NEXIUM [Concomitant]
     Indication: HIATUS HERNIA
     Dosage: 40MG
     Route: 048
     Dates: start: 20050101
  5. SYNTHROID [Concomitant]
     Indication: HYPOTHYROIDISM
     Dosage: .125MG
     Route: 048
     Dates: start: 20050101
  6. ATENOLOL [Concomitant]
     Dosage: 50MG
     Route: 048
     Dates: start: 20050101
  7. LUNESTA [Concomitant]
     Indication: INSOMNIA
     Dosage: 3MG
     Route: 048
     Dates: start: 20050101
  8. CITRUCEL FIBER [Concomitant]
     Dates: start: 20000101
  9. COLACE [Concomitant]
     Indication: FAECES HARD
     Route: 048
     Dates: start: 20050101
  10. OMEGA 3 SUPPLEMENTS [Concomitant]
     Indication: PROPHYLAXIS
     Dosage: 1200MG
     Route: 048
     Dates: start: 20080401

REACTIONS (5)
  - CATARACT [None]
  - CONJUNCTIVAL CYST [None]
  - CYST RUPTURE [None]
  - URINARY RETENTION [None]
  - VISION BLURRED [None]
